FAERS Safety Report 7129511-5 (Version None)
Quarter: 2010Q4

REPORT INFORMATION
  Report Type: 
  Country: None (occurrence: None)
  Receive Date: 20101130
  Receipt Date: 20101119
  Transmission Date: 20110411
  Serious: Yes (Death)
  Sender: FDA-Public Use
  Company Number: US-JNJFOC-20040903434

PATIENT
  Age: 18 Month
  Sex: Male

DRUGS (1)
  1. EXTRA STRENGTH TYLENOL PM [Suspect]
     Indication: HOMICIDE
     Route: 048

REACTIONS (3)
  - DRUG TOXICITY [None]
  - HOMICIDE [None]
  - RESPIRATORY ARREST [None]
